FAERS Safety Report 6202034-3 (Version None)
Quarter: 2009Q2

REPORT INFORMATION
  Report Type: 
  Country: None (occurrence: None)
  Receive Date: 20090526
  Receipt Date: 20090515
  Transmission Date: 20091009
  Serious: Yes (Hospitalization)
  Sender: FDA-Public Use
  Company Number: A0785899A

PATIENT
  Age: 56 Year
  Sex: Female
  Weight: 88.6 kg

DRUGS (1)
  1. ROSIGLITAZONE MALEATE [Suspect]
     Indication: BLOOD GLUCOSE INCREASED
     Route: 048

REACTIONS (2)
  - LOWER LIMB FRACTURE [None]
  - OSTEOGENESIS IMPERFECTA [None]
